FAERS Safety Report 6271565-2 (Version None)
Quarter: 2009Q3

REPORT INFORMATION
  Report Type: 
  Country: None (occurrence: None)
  Receive Date: 20090715
  Receipt Date: 20080929
  Transmission Date: 20100115
  Serious: Yes (Hospitalization, Other)
  Sender: FDA-Public Use
  Company Number: 200814116

PATIENT
  Age: 66 Year
  Sex: Female
  Weight: 74.8435 kg

DRUGS (4)
  1. CARIMUNE NF [Suspect]
     Indication: SYSTEMIC LUPUS ERYTHEMATOSUS
     Dosage: (INTRAVENOUS (NOT OTHERWISE SPECIFIED)) ; (INTRAVENOUS (NOT OTHERWISE SPECIFIED))
     Route: 042
     Dates: start: 20080917, end: 20080917
  2. CARIMUNE NF [Suspect]
     Indication: SYSTEMIC LUPUS ERYTHEMATOSUS
     Dosage: (INTRAVENOUS (NOT OTHERWISE SPECIFIED)) ; (INTRAVENOUS (NOT OTHERWISE SPECIFIED))
     Route: 042
     Dates: start: 20080918, end: 20080918
  3. CARIMUNE NF [Suspect]
  4. SOLU-MEDROL [Concomitant]

REACTIONS (4)
  - ANURIA [None]
  - BLOOD CREATININE INCREASED [None]
  - INCORRECT DRUG ADMINISTRATION RATE [None]
  - RENAL FAILURE ACUTE [None]
